FAERS Safety Report 13909406 (Version 1)
Quarter: 2017Q3

REPORT INFORMATION
  Report Type: Spontaneous
  Country: US (occurrence: US)
  Receive Date: 20170828
  Receipt Date: 20170828
  Transmission Date: 20171127
  Serious: Yes (Other)
  Sender: FDA-Public Use
  Company Number: GXBR2017US001794

PATIENT
  Age: 73 Year
  Sex: Male

DRUGS (1)
  1. GLIPIZIDE TABLETS USP [Suspect]
     Active Substance: GLIPIZIDE
     Indication: DIABETES MELLITUS
     Dosage: 5 MG, BID
     Route: 065

REACTIONS (1)
  - Diabetes mellitus inadequate control [Unknown]
